FAERS Safety Report 16943546 (Version 4)
Quarter: 2021Q1

REPORT INFORMATION
  Report Type: Report from Study
  Country: KR (occurrence: KR)
  Receive Date: 20191022
  Receipt Date: 20210118
  Transmission Date: 20210419
  Serious: Yes (Hospitalization)
  Sender: FDA-Public Use
  Company Number: KR-ROCHE-2373625

PATIENT
  Age: 55 Year
  Sex: Female
  Weight: 61.4 kg

DRUGS (43)
  1. TRASTUZUMAB. [Suspect]
     Active Substance: TRASTUZUMAB
     Indication: HER2 POSITIVE BREAST CANCER
     Dosage: LOADING DOSE?DATE OF MOST RECENT DOSE OF TRASTUZUMAB PRIOR TO THE ONSET OF STEATOHEPATITIS: 21/JUN/2
     Route: 042
     Dates: start: 20190621
  2. GASTER (SOUTH KOREA) [Concomitant]
     Indication: NAUSEA
     Dates: start: 20190621, end: 20190916
  3. HYDROCORTISONE. [Concomitant]
     Active Substance: HYDROCORTISONE
     Route: 042
     Dates: start: 20190828, end: 20190828
  4. CETIZAL [Concomitant]
     Indication: PYREXIA
     Dates: start: 20191103, end: 20191108
  5. AMOXICLE [Concomitant]
     Indication: PYREXIA
     Dates: start: 20191103, end: 20191108
  6. DOXORUBICIN [Suspect]
     Active Substance: DOXORUBICIN
     Indication: HER2 POSITIVE BREAST CANCER
     Dosage: DATE OF MOST RECENT DOSE OF DOXORUBICIN PRIOR TO ONSET OF STEATOHEPATITIS: 31/MAY/2019 (96.6 MG)
     Route: 042
     Dates: start: 20190417
  7. NEXIUM [Concomitant]
     Active Substance: ESOMEPRAZOLE MAGNESIUM
     Dosage: PEPTIC ULCERATIVE AGENT
     Route: 048
     Dates: start: 20190517
  8. LEGALON [Concomitant]
     Active Substance: DIETARY SUPPLEMENT\HERBALS\MILK THISTLE
     Dosage: LIVER PROTECTION
     Route: 048
     Dates: start: 20190411
  9. GASTER (SOUTH KOREA) [Concomitant]
     Indication: VOMITING
  10. PETHIDINE [Concomitant]
     Active Substance: MEPERIDINE
     Indication: SEDATION
     Dates: start: 20190805, end: 20190805
  11. CEFAZOLIN [Concomitant]
     Active Substance: CEFAZOLIN
     Dates: start: 20190826, end: 20190827
  12. KYTRIL [Concomitant]
     Active Substance: GRANISETRON HYDROCHLORIDE
     Indication: VOMITING
  13. SYNTHROID [Concomitant]
     Active Substance: LEVOTHYROXINE SODIUM
     Indication: HYPOTHYROIDISM
     Dates: start: 20200617
  14. CYCLOPHOSPHAMIDE. [Suspect]
     Active Substance: CYCLOPHOSPHAMIDE
     Indication: HER2 POSITIVE BREAST CANCER
     Dosage: DATE OF MOST RECENT DOSE OF CYCLOPHOSPHAMIDE PRIOR TO ONSET OF STEATOHEPATITIS: 31/MAY/2019 (966 MG)
     Route: 042
     Dates: start: 20190417
  15. PERTUZUMAB. [Suspect]
     Active Substance: PERTUZUMAB
     Indication: HER2 POSITIVE BREAST CANCER
     Dosage: LOADING DOSE?DATE OF MOST RECENT DOSE OF PERTUZUMAB PRIOR TO ONSET OF STEATOHEPATITIS: 21/JUN/2019 (
     Route: 042
     Dates: start: 20190621
  16. ANFRADE [Concomitant]
     Indication: HYPERLIPIDAEMIA
     Route: 048
     Dates: start: 2011
  17. ATACAND PLUS [Concomitant]
     Active Substance: CANDESARTAN CILEXETIL\HYDROCHLOROTHIAZIDE
     Indication: HYPERTENSION
     Dosage: UNIT? UNKNOWN
     Route: 048
     Dates: start: 2011
  18. CHLORPHENIRAMINE. [Concomitant]
     Active Substance: CHLORPHENIRAMINE
     Indication: HYPERSENSITIVITY
     Dates: start: 20190621
  19. DEXAMETHASONE. [Concomitant]
     Active Substance: DEXAMETHASONE
     Indication: NAUSEA
  20. NASEA [Concomitant]
     Active Substance: RAMOSETRON HYDROCHLORIDE
     Indication: VOMITING
  21. MAGNESIUM HYDROXIDE. [Concomitant]
     Active Substance: MAGNESIUM HYDROXIDE
     Indication: CONSTIPATION
     Dates: start: 20190829, end: 20190901
  22. SOLONDO [Concomitant]
     Active Substance: PREDNISOLONE
     Route: 048
     Dates: start: 20190729, end: 20190807
  23. EZETIMIBE. [Concomitant]
     Active Substance: EZETIMIBE
     Indication: HYPERLIPIDAEMIA
     Dates: end: 20200602
  24. PACLITAXEL. [Suspect]
     Active Substance: PACLITAXEL
     Indication: HER2 POSITIVE BREAST CANCER
     Dosage: DATE OF MOST RECENT DOSE OF PACLITAXEL PRIOR TO ONSET OF STEATOHEPATITIS: 05/JUL/2019 (128.8 MG)
     Route: 042
     Dates: start: 20190621
  25. BEECOM?C [Concomitant]
     Dosage: HEALTH SUPPLEMENT
     Route: 048
     Dates: start: 2011
  26. ACETAMINOPHEN. [Concomitant]
     Active Substance: ACETAMINOPHEN
     Indication: HYPERSENSITIVITY
     Dates: start: 20190621
  27. KYTRIL [Concomitant]
     Active Substance: GRANISETRON HYDROCHLORIDE
     Indication: NAUSEA
     Dates: start: 20190621, end: 20190916
  28. NASEA [Concomitant]
     Active Substance: RAMOSETRON HYDROCHLORIDE
     Indication: NAUSEA
     Dates: start: 20190827, end: 20190827
  29. PREDNISOLONE. [Concomitant]
     Active Substance: PREDNISOLONE
     Route: 048
     Dates: start: 20190830, end: 20190831
  30. ANASTROZOLE. [Concomitant]
     Active Substance: ANASTROZOLE
     Dates: start: 20191028
  31. URSA [Concomitant]
     Active Substance: URSODIOL
     Dosage: LIVER PROTECTION
     Route: 048
     Dates: start: 20190411
  32. ROISOL [Concomitant]
     Indication: PYREXIA
     Dates: start: 20191103, end: 20191108
  33. CHLORPHENIRAMINE. [Concomitant]
     Active Substance: CHLORPHENIRAMINE
     Indication: PREMEDICATION
  34. KETOCIN (SOUTH KOREA) [Concomitant]
     Dates: start: 20190827, end: 20190901
  35. HYDROCORTISONE. [Concomitant]
     Active Substance: HYDROCORTISONE
     Route: 042
     Dates: start: 20190827, end: 20190827
  36. HYDROCORTISONE. [Concomitant]
     Active Substance: HYDROCORTISONE
     Route: 042
     Dates: start: 20190827, end: 20190827
  37. SOLONDO [Concomitant]
     Active Substance: PREDNISOLONE
     Indication: ALANINE AMINOTRANSFERASE INCREASED
     Route: 048
     Dates: start: 20190722, end: 20190728
  38. LIPITOR [Concomitant]
     Active Substance: ATORVASTATIN CALCIUM
     Indication: HYPERLIPIDAEMIA
     Dates: start: 20200602
  39. PLACEBO [Suspect]
     Active Substance: UNSPECIFIED INGREDIENT
     Indication: HER2 POSITIVE BREAST CANCER
     Dosage: DATE OF MOST RECENT DOSE PRIOR TO ONSET OF EVENT : 21/JUN/2019.
     Route: 042
     Dates: start: 20190417
  40. DEXAMETHASONE. [Concomitant]
     Active Substance: DEXAMETHASONE
     Indication: VOMITING
     Route: 042
     Dates: start: 20190621, end: 20190916
  41. ACLOFEN [Concomitant]
     Dosage: PAIN CONTROL
     Dates: start: 20190621, end: 20190916
  42. TRIDOL [Concomitant]
     Active Substance: TRAMADOL HYDROCHLORIDE
     Dates: start: 20190805, end: 20190806
  43. PREDNISOLONE. [Concomitant]
     Active Substance: PREDNISOLONE
     Route: 048
     Dates: start: 20190829, end: 20190829

REACTIONS (1)
  - Steatohepatitis [Not Recovered/Not Resolved]

NARRATIVE: CASE EVENT DATE: 20190712
